FAERS Safety Report 5907480-0 (Version None)
Quarter: 2008Q4

REPORT INFORMATION
  Report Type: 
  Country: None (occurrence: None)
  Receive Date: 20081003
  Receipt Date: 20080926
  Transmission Date: 20090506
  Serious: Yes (Life-Threatening)
  Sender: FDA-Public Use
  Company Number: B0539896A

PATIENT
  Age: 5 Year

DRUGS (1)
  1. ZINACEF [Suspect]
     Route: 042
     Dates: start: 20080901, end: 20080901

REACTIONS (4)
  - CHILLS [None]
  - CHROMATURIA [None]
  - CYANOSIS [None]
  - URINE ABNORMALITY [None]
